FAERS Safety Report 5902781-4 (Version None)
Quarter: 2008Q3

REPORT INFORMATION
  Report Type: 
  Country: None (occurrence: None)
  Receive Date: 20080926
  Receipt Date: 20080922
  Transmission Date: 20090109
  Serious: Yes (Death)
  Sender: FDA-Public Use
  Company Number: 2008-184147-NL

PATIENT
  Age: 64 Year
  Sex: Female

DRUGS (9)
  1. MIRTAZAPINE [Suspect]
     Dosage: 15 MG, ORAL
     Route: 048
     Dates: start: 20080320, end: 20080813
  2. MEPROBAMATE [Suspect]
     Indication: AGITATION
     Dosage: 250 MG PRN/400 MG
     Dates: start: 20060110, end: 20080801
  3. MEPROBAMATE [Suspect]
     Indication: AGITATION
     Dosage: 250 MG PRN/400 MG
     Dates: start: 20080805, end: 20080818
  4. RIVASTIGMINE TARTRATE [Suspect]
     Indication: DEMENTIA ALZHEIMER'S TYPE
     Dosage: 6 MG BID/0.5 MG
     Dates: end: 20080819
  5. RIVASTIGMINE TARTRATE [Suspect]
     Indication: DEPRESSED MOOD
     Dosage: 6 MG BID/0.5 MG
     Dates: end: 20080819
  6. RIVASTIGMINE TARTRATE [Suspect]
     Indication: DEMENTIA ALZHEIMER'S TYPE
     Dosage: 6 MG BID/0.5 MG
     Dates: start: 20050425
  7. RIVASTIGMINE TARTRATE [Suspect]
     Indication: DEPRESSED MOOD
     Dosage: 6 MG BID/0.5 MG
     Dates: start: 20050425
  8. RISPERIDONE [Suspect]
     Indication: DELUSION
     Dosage: 2 MG/0.5 MG
     Dates: start: 20060110, end: 20080820
  9. RISPERIDONE [Suspect]
     Indication: DELUSION
     Dosage: 2 MG/0.5 MG
     Dates: start: 20080820, end: 20080825

REACTIONS (9)
  - ABNORMAL BEHAVIOUR [None]
  - GALLBLADDER DISORDER [None]
  - HEPATITIS FULMINANT [None]
  - JAUNDICE [None]
  - MIOSIS [None]
  - PYREXIA [None]
  - RESPIRATORY DISORDER [None]
  - SCREAMING [None]
  - VOMITING [None]
